FAERS Safety Report 7110085-X (Version None)
Quarter: 2010Q4

REPORT INFORMATION
  Report Type: 
  Country: None (occurrence: None)
  Receive Date: 20101118
  Receipt Date: 20101115
  Transmission Date: 20110411
  Serious: Yes (Death)
  Sender: FDA-Public Use
  Company Number: PHFR2010GB05364

PATIENT
  Sex: Male

DRUGS (2)
  1. CLOZARIL [Suspect]
     Indication: SCHIZOPHRENIA
     Dosage: UNK
     Dates: start: 20031106
  2. AMISULPRIDE [Concomitant]
     Dosage: 50 MG DAILY

REACTIONS (3)
  - DEATH [None]
  - DIARRHOEA [None]
  - NASOPHARYNGITIS [None]
